FAERS Safety Report 24719637 (Version 2)
Quarter: 2024Q4

REPORT INFORMATION
  Report Type: Report from Study
  Country: US (occurrence: US)
  Receive Date: 20241211
  Receipt Date: 20241226
  Transmission Date: 20250115
  Serious: Yes (Hospitalization, Other)
  Sender: ABBVIE
  Company Number: US-ABBVIE-6038629

PATIENT
  Age: 55 Year
  Sex: Male
  Weight: 73.935 kg

DRUGS (3)
  1. SKYRIZI [Suspect]
     Active Substance: RISANKIZUMAB-RZAA
     Indication: Crohn^s disease
     Route: 058
     Dates: start: 20240221
  2. IMURAN [Concomitant]
     Active Substance: AZATHIOPRINE
     Indication: Red blood cell count abnormal
  3. Dulouxetine [Concomitant]
     Indication: Obsessive-compulsive disorder

REACTIONS (10)
  - Gastrointestinal infection [Recovering/Resolving]
  - Insomnia [Not Recovered/Not Resolved]
  - White blood cell count increased [Not Recovered/Not Resolved]
  - Back pain [Recovering/Resolving]
  - Pyrexia [Recovered/Resolved]
  - Pyrexia [Recovered/Resolved]
  - Dysuria [Recovered/Resolved]
  - Restlessness [Not Recovered/Not Resolved]
  - Mass [Recovering/Resolving]
  - Rectal abscess [Recovering/Resolving]

NARRATIVE: CASE EVENT DATE: 20240901
